FAERS Safety Report 11681931 (Version 2)
Quarter: 2015Q4

REPORT INFORMATION
  Report Type: Spontaneous
  Country: AE (occurrence: AE)
  Receive Date: 20151029
  Receipt Date: 20151029
  Transmission Date: 20160304
  Serious: Yes (Other)
  Sender: FDA-Public Use
  Company Number: PHHY2015AE136048

PATIENT
  Age: 2 Year
  Sex: Female
  Weight: 12.2 kg

DRUGS (3)
  1. FOLIC ACID. [Concomitant]
     Active Substance: FOLIC ACID
     Indication: PRODUCT USED FOR UNKNOWN INDICATION
     Dosage: 1 MG, QW
     Route: 048
     Dates: start: 20150803
  2. EXJADE [Suspect]
     Active Substance: DEFERASIROX
     Indication: SERUM FERRITIN INCREASED
     Dosage: 500 MG (40.6 PER KG), QD
     Route: 048
     Dates: start: 20150503, end: 20150803
  3. MULTI VITAMIN [Concomitant]
     Active Substance: VITAMINS
     Indication: PRODUCT USED FOR UNKNOWN INDICATION
     Dosage: 5 ML, QD PER DAY
     Route: 048
     Dates: start: 20150803

REACTIONS (3)
  - Oxygen saturation decreased [Unknown]
  - Blood bicarbonate decreased [Recovered/Resolved]
  - Metabolic acidosis [Recovering/Resolving]

NARRATIVE: CASE EVENT DATE: 20150803
